FAERS Safety Report 5618170-6 (Version None)
Quarter: 2008Q1

REPORT INFORMATION
  Report Type: 
  Country: None (occurrence: None)
  Receive Date: 20080207
  Receipt Date: 20071031
  Transmission Date: 20080703
  Serious: No
  Sender: FDA-Public Use
  Company Number: A0691819A

PATIENT
  Sex: Female

DRUGS (1)
  1. PAXIL [Suspect]
     Indication: ANXIETY
     Route: 048
     Dates: start: 20020101

REACTIONS (3)
  - ADVERSE DRUG REACTION [None]
  - FEELING ABNORMAL [None]
  - WITHDRAWAL SYNDROME [None]
